FAERS Safety Report 20970124 (Version 1)
Quarter: 2022Q2

REPORT INFORMATION
  Report Type: Spontaneous
  Country: US (occurrence: US)
  Receive Date: 20220616
  Receipt Date: 20220616
  Transmission Date: 20220721
  Serious: Yes (Hospitalization)
  Sender: FDA-Public Use
  Company Number: US-SA-2022SA205474

PATIENT
  Age: 48 Year
  Sex: Female
  Weight: 44 kg

DRUGS (18)
  1. OXALIPLATIN [Suspect]
     Active Substance: OXALIPLATIN
     Indication: Pancreatic carcinoma
     Dosage: 121.55 MG, QOW
     Route: 042
     Dates: start: 20220323, end: 20220323
  2. LEUCOVORIN [Suspect]
     Active Substance: LEUCOVORIN
     Indication: Pancreatic carcinoma
     Dosage: 572 MG, QW
     Route: 042
     Dates: start: 20220323, end: 20220323
  3. FLUOROURACIL [Suspect]
     Active Substance: FLUOROURACIL
     Indication: Pancreatic carcinoma
     Dosage: 1 IN 2 WK
     Route: 042
     Dates: start: 20220323, end: 20220325
  4. ACETAMINOPHEN [Concomitant]
     Active Substance: ACETAMINOPHEN
     Indication: Arthralgia
     Dosage: 500 MG, Q6H
     Route: 048
     Dates: start: 20120101
  5. FLUTICASONE PROPIONATE\SALMETEROL XINAFOATE [Concomitant]
     Active Substance: FLUTICASONE PROPIONATE\SALMETEROL XINAFOATE
     Indication: Asthma
     Dosage: 2 PUFF (1 PUFF, 1 IN 1 D)
     Route: 055
     Dates: start: 20210305
  6. ALBUTEROL [Concomitant]
     Active Substance: ALBUTEROL
     Indication: Asthma
     Dosage: 0.09 MG, QID
     Route: 055
     Dates: start: 20210305
  7. FOLIC ACID [Concomitant]
     Active Substance: FOLIC ACID
     Indication: Nutritional supplementation
     Dosage: 1 MG, QD
     Dates: start: 20210305
  8. QUETIAPINE [Concomitant]
     Active Substance: QUETIAPINE
     Indication: Bipolar disorder
     Dosage: 18 MG, QHS
     Route: 048
     Dates: start: 20000101
  9. QUETIAPINE [Concomitant]
     Active Substance: QUETIAPINE
     Indication: Schizophrenia
  10. HYDROMORPHONE [Concomitant]
     Active Substance: HYDROMORPHONE
     Indication: Abdominal pain
     Dosage: 2 MG, Q4H
     Route: 048
     Dates: start: 20220201
  11. ASPIRIN [Concomitant]
     Active Substance: ASPIRIN
     Indication: Cardiovascular event prophylaxis
     Dosage: 81 MG, QD
     Route: 048
     Dates: start: 20210101
  12. BACLOFEN [Concomitant]
     Active Substance: BACLOFEN
     Indication: Back pain
     Dosage: 5-10 MG (3 IN 1 D)
     Route: 048
     Dates: start: 20210101
  13. VITAMIN D2 [Concomitant]
     Active Substance: ERGOCALCIFEROL
     Indication: Nutritional supplementation
     Dosage: 50000 IU, QW
     Route: 048
     Dates: start: 20110101
  14. VITAMINS [Concomitant]
     Active Substance: VITAMINS
     Indication: Nutritional supplementation
     Dosage: 1 DF, QD
     Route: 048
     Dates: start: 20110101
  15. NALOXONE [Concomitant]
     Active Substance: NALOXONE
     Indication: Overdose
     Dosage: 4 MG, PRN
     Route: 045
     Dates: start: 20110101
  16. SENNOSIDES A AND B [Concomitant]
     Active Substance: SENNOSIDES A AND B
     Indication: Constipation
     Dosage: UNK
     Dates: start: 20110101
  17. SUMATRIPTAN [Concomitant]
     Active Substance: SUMATRIPTAN
     Indication: Migraine
     Dosage: 100 MG, PRN
     Route: 048
     Dates: start: 20120101
  18. LACTULOSE [Concomitant]
     Active Substance: LACTULOSE
     Indication: Constipation
     Dosage: 20 G, TID
     Route: 048
     Dates: start: 20220315

REACTIONS (2)
  - Vomiting [Unknown]
  - Nausea [Unknown]

NARRATIVE: CASE EVENT DATE: 20220407
